FAERS Safety Report 15656593 (Version 6)
Quarter: 2020Q3

REPORT INFORMATION
  Report Type: Report from Study
  Country: US (occurrence: US)
  Receive Date: 20181126
  Receipt Date: 20190211
  Transmission Date: 20201105
  Serious: Yes (Death)
  Sender: FDA-Public Use
  Company Number: US-PFIZER INC-2018470450

PATIENT
  Age: 72 Year
  Sex: Male
  Weight: 79 kg

DRUGS (22)
  1. SENNA [Concomitant]
     Active Substance: SENNA LEAF\SENNOSIDES\SENNOSIDES A AND B
     Dosage: UNK
     Dates: start: 20170118
  2. CHOLECALCIFEROL [Concomitant]
     Active Substance: CHOLECALCIFEROL
     Dosage: UNK
     Dates: start: 20161024
  3. ONDANSETRON [Concomitant]
     Active Substance: ONDANSETRON
     Dosage: UNK
     Dates: start: 20170526, end: 20170528
  4. ONDANSETRON [Concomitant]
     Active Substance: ONDANSETRON
     Dosage: UNK
     Dates: start: 20170728, end: 20170801
  5. TESTOSTERONE. [Concomitant]
     Active Substance: TESTOSTERONE
     Dosage: UNK
     Dates: start: 20161024, end: 20170524
  6. ACETAMINOPHEN. [Concomitant]
     Active Substance: ACETAMINOPHEN
     Dosage: UNK
     Dates: start: 20170605, end: 20170605
  7. ONDANSETRON [Concomitant]
     Active Substance: ONDANSETRON
     Dosage: UNK
     Dates: start: 20170316
  8. ASPIRIN. [Concomitant]
     Active Substance: ASPIRIN
     Dosage: UNK
     Dates: start: 20161024
  9. METFORMIN [Concomitant]
     Active Substance: METFORMIN HYDROCHLORIDE
     Dosage: UNK
     Dates: start: 20161024
  10. TALAZOPARIB. [Suspect]
     Active Substance: TALAZOPARIB
     Indication: ACUTE MYELOID LEUKAEMIA
     Dosage: 0.25 MG, 1X/DAY
     Route: 048
     Dates: start: 20170526, end: 20181105
  11. ONDANSETRON [Concomitant]
     Active Substance: ONDANSETRON
     Dosage: UNK
     Dates: start: 20170530, end: 20170531
  12. ONDANSETRON [Concomitant]
     Active Substance: ONDANSETRON
     Dosage: UNK
     Dates: start: 20170705, end: 20170705
  13. ATORVASTATIN [Concomitant]
     Active Substance: ATORVASTATIN
     Dosage: UNK
     Dates: start: 20161024
  14. METOPROLOL SUCCINATE XL [Concomitant]
     Active Substance: METOPROLOL SUCCINATE
     Dosage: UNK
     Dates: start: 20161024
  15. LEVOFLOXACIN. [Concomitant]
     Active Substance: LEVOFLOXACIN
     Dosage: UNK
     Dates: start: 201702
  16. DECITABINE. [Suspect]
     Active Substance: DECITABINE
     Indication: ACUTE MYELOID LEUKAEMIA
     Dosage: 38 MG, QD FOR 5 DAYS/ CYCLE
     Route: 042
     Dates: start: 20181017, end: 20181021
  17. ONDANSETRON [Concomitant]
     Active Substance: ONDANSETRON
     Dosage: UNK
     Dates: start: 20170630, end: 20170703
  18. DOCUSATE SODIUM. [Concomitant]
     Active Substance: DOCUSATE SODIUM
     Dosage: UNK
     Dates: start: 20170118
  19. VORICONAZOL [Concomitant]
     Active Substance: VORICONAZOLE
     Dosage: UNK
     Dates: start: 20170413
  20. TRAMADOL. [Concomitant]
     Active Substance: TRAMADOL
     Dosage: UNK
     Dates: start: 20170606
  21. ACYCLOVIR [ACICLOVIR] [Concomitant]
     Active Substance: ACYCLOVIR
     Dosage: UNK
     Dates: start: 20170130
  22. CALCIUM CARBONATE. [Concomitant]
     Active Substance: CALCIUM CARBONATE
     Dosage: UNK
     Dates: start: 20161024

REACTIONS (2)
  - Pneumonia [Fatal]
  - Neoplasm progression [Fatal]

NARRATIVE: CASE EVENT DATE: 20181215
